FAERS Safety Report 5293516-X (Version None)
Quarter: 2007Q2

REPORT INFORMATION
  Report Type: 
  Country: None (occurrence: None)
  Receive Date: 20070411
  Receipt Date: 20070405
  Transmission Date: 20071010
  Serious: Yes (Hospitalization)
  Sender: FDA-Public Use
  Company Number: 200703005838

PATIENT
  Age: 54 Year
  Sex: Male
  Weight: 104.2 kg

DRUGS (10)
  1. AVANDIA [Suspect]
     Indication: DIABETES MELLITUS NON-INSULIN-DEPENDENT
     Route: 048
     Dates: start: 20061220
  2. EXENATIDE [Suspect]
     Indication: DIABETES MELLITUS NON-INSULIN-DEPENDENT
     Route: 058
     Dates: start: 20061220
  3. METFORMIN [Concomitant]
  4. ASPIRIN [Concomitant]
     Dates: start: 20050809
  5. ATENOLOL [Concomitant]
     Dates: start: 20050801
  6. LISINOPRIL [Concomitant]
  7. PLAVIX [Concomitant]
     Dates: start: 20050810
  8. CRESTOR [Concomitant]
  9. WELLBUTRIN [Concomitant]
     Dates: start: 20060727
  10. INSULIN [Concomitant]

REACTIONS (1)
  - COLITIS ISCHAEMIC [None]
